FAERS Safety Report 9644285 (Version 3)
Quarter: 2014Q1

REPORT INFORMATION
  Report Type: Spontaneous
  Country: JP (occurrence: JP)
  Receive Date: 20131025
  Receipt Date: 20140205
  Transmission Date: 20141002
  Serious: Yes (Other)
  Sender: FDA-Public Use
  Company Number: JP-AMGEN-JPNSP2013075112

PATIENT
  Age: 74 Year
  Sex: Male
  Weight: 54 kg

DRUGS (10)
  1. RANMARK [Suspect]
     Indication: METASTASES TO BONE
     Dosage: 120 MG, QD
     Route: 058
     Dates: start: 20120628, end: 20130620
  2. PREDONINE [Suspect]
     Indication: PALLIATIVE CARE
     Dosage: 5 MG, QD, REDUCED TO 2.5
     Route: 048
     Dates: start: 20130418
  3. EDIROL [Concomitant]
     Indication: METASTASES TO BONE
     Dosage: 0.75 MUG, QD
     Route: 048
     Dates: start: 20120627
  4. CALCIUM LACTATE [Concomitant]
     Indication: METASTASES TO BONE
     Dosage: 1 G, TID
     Route: 048
     Dates: start: 20120627
  5. MAGLAX [Concomitant]
     Indication: CONSTIPATION
     Dosage: 660 MG, TID
     Route: 048
     Dates: start: 20120613
  6. ADALAT [Concomitant]
     Indication: HYPERTENSION
     Dosage: 20 MG, QD
     Route: 048
  7. MUCOSTA [Concomitant]
     Indication: GASTRITIS
     Dosage: 100 MG, TID
     Route: 048
     Dates: start: 20120613
  8. IRESSA [Concomitant]
     Indication: LUNG NEOPLASM MALIGNANT
     Dosage: 250 MG, QD
     Route: 048
     Dates: start: 20120717, end: 20130625
  9. PARIET [Concomitant]
     Indication: GASTRIC ULCER
     Dosage: 10 MG, QD
     Route: 048
     Dates: start: 20120711
  10. RESLIN [Concomitant]
     Indication: DEPRESSION
     Dosage: 50 MG, QD
     Route: 048
     Dates: start: 20130321

REACTIONS (2)
  - Osteitis [Recovering/Resolving]
  - Exposed bone in jaw [Not Recovered/Not Resolved]
